FAERS Safety Report 4540835-8 (Version None)
Quarter: 2004Q4

REPORT INFORMATION
  Report Type: 
  Country: None (occurrence: None)
  Receive Date: 20041229
  Receipt Date: 20040720
  Transmission Date: 20050328
  Serious: Yes (Death, Other)
  Sender: FDA-Public Use
  Company Number: DE-MERCK-0407DEU00163

PATIENT
  Age: 14 Year
  Sex: Female
  Weight: 48 kg

DRUGS (3)
  1. VIOXX [Suspect]
     Indication: HYPOKALAEMIA
     Route: 048
     Dates: start: 20030104, end: 20040601
  2. POTASSIUM (UNSPECIFIED) [Concomitant]
     Indication: HYPOKALAEMIA
     Route: 065
  3. MAGNESIUM (UNSPECIFIED) [Concomitant]
     Route: 065

REACTIONS (18)
  - ASPIRATION [None]
  - BRADYCARDIA [None]
  - BRONCHITIS [None]
  - CARDIOMEGALY [None]
  - ELECTROCARDIOGRAM QT PROLONGED [None]
  - EMPHYSEMA [None]
  - HAEMORRHAGE [None]
  - INFECTION [None]
  - INJURY ASPHYXIATION [None]
  - LOSS OF CONSCIOUSNESS [None]
  - NASOPHARYNGITIS [None]
  - PRESCRIBED OVERDOSE [None]
  - SINUS ARRHYTHMIA [None]
  - SINUS TACHYCARDIA [None]
  - SUPRAVENTRICULAR EXTRASYSTOLES [None]
  - TONGUE DISCOLOURATION [None]
  - TONSILLAR HYPERTROPHY [None]
  - TRACHEITIS [None]
